FAERS Safety Report 8511360-4 (Version None)
Quarter: 2012Q3

REPORT INFORMATION
  Report Type: 
  Country: None (occurrence: None)
  Receive Date: 20120716
  Receipt Date: 20120709
  Transmission Date: 20120928
  Serious: Yes (Death, Hospitalization, Other)
  Sender: FDA-Public Use
  Company Number: JP-ASTELLAS-2011JP009649

PATIENT
  Sex: Male

DRUGS (15)
  1. PREDNISOLONE [Concomitant]
     Indication: RHEUMATOID ARTHRITIS
     Dosage: 2.5 MG, BID
     Route: 048
     Dates: start: 20040412, end: 20050607
  2. DIOVAN [Concomitant]
     Indication: HYPERTENSION
     Dosage: 160 MG, UID/QD
     Route: 048
     Dates: start: 20060904, end: 20111109
  3. AZULFIDINE [Concomitant]
     Indication: RHEUMATOID ARTHRITIS
     Dosage: 500 MG, UID/QD
     Route: 048
     Dates: start: 20040412, end: 20070820
  4. RHEUMATREX [Suspect]
     Indication: RHEUMATOID ARTHRITIS
     Dosage: 3 MG, BID
     Route: 048
     Dates: start: 20040412, end: 20051101
  5. PREDNISOLONE [Concomitant]
     Dosage: 1.75 MG, BID
     Route: 048
     Dates: start: 20080204, end: 20080811
  6. LANSOPRAZOLE [Concomitant]
     Indication: GASTROOESOPHAGEAL REFLUX DISEASE
     Dosage: 15 MG, UID/QD
     Route: 048
     Dates: start: 20100908, end: 20111109
  7. AZULFIDINE [Concomitant]
     Dosage: 250 MG, UID/QD
     Route: 048
     Dates: start: 20070820, end: 20111109
  8. PROGRAF [Suspect]
     Indication: RHEUMATOID ARTHRITIS
     Dosage: 1 MG, UID/QD
     Route: 048
     Dates: start: 20060424, end: 20111109
  9. RHEUMATREX [Suspect]
     Dosage: 2 MG, BID
     Route: 048
     Dates: start: 20051101, end: 20111109
  10. REBAMIPIDE [Concomitant]
     Indication: RHEUMATOID ARTHRITIS
     Dosage: 50 MG, BID
     Route: 048
     Dates: start: 20110706, end: 20111109
  11. RECALBON [Concomitant]
     Indication: OSTEOPOROSIS
     Dosage: 50 MG, UID/QD
     Route: 048
     Dates: start: 20111012, end: 20111109
  12. MELOXICAM [Concomitant]
     Indication: RHEUMATOID ARTHRITIS
     Dosage: 10 MG, UID/QD
     Route: 048
     Dates: start: 20110706, end: 20111109
  13. ALLOPURINOL [Concomitant]
     Indication: GOUT
     Dosage: 100 MG, UID/QD
     Route: 048
     Dates: start: 20040412, end: 20111109
  14. PREDNISOLONE [Concomitant]
     Dosage: 2.25 MG, BID
     Route: 048
     Dates: start: 20080811, end: 20111109
  15. PREDNISOLONE [Concomitant]
     Dosage: 2 MG, BID
     Route: 048
     Dates: start: 20050607, end: 20080204

REACTIONS (4)
  - INTENTIONAL DRUG MISUSE [None]
  - PNEUMONIA [None]
  - CEREBRAL INFARCTION [None]
  - PHARYNGOTONSILLITIS [None]
